FAERS Safety Report 24625866 (Version 1)
Quarter: 2024Q4

REPORT INFORMATION
  Report Type: Spontaneous
  Country: US (occurrence: US)
  Receive Date: 20241115
  Receipt Date: 20241115
  Transmission Date: 20250115
  Serious: No
  Sender: ANI
  Company Number: US-ANIPHARMA-2024-US-057832

PATIENT
  Age: 59 Year
  Sex: Male
  Weight: 128.37 kg

DRUGS (16)
  1. CORTICOTROPIN [Suspect]
     Active Substance: CORTICOTROPIN
     Indication: Rheumatoid arthritis
     Dosage: 1 ML INJECTED
     Route: 058
     Dates: start: 20241024
  2. AMLODIPINE [Concomitant]
     Active Substance: AMLODIPINE BESYLATE
  3. LOSARTAN [Concomitant]
     Active Substance: LOSARTAN
  4. PANTOPRAZOLE [Concomitant]
     Active Substance: PANTOPRAZOLE
  5. LORAZEPAM [Concomitant]
     Active Substance: LORAZEPAM
  6. OZEMPIC [Concomitant]
     Active Substance: SEMAGLUTIDE
  7. HYDROCODONE [Concomitant]
     Active Substance: HYDROCODONE
  8. BACLOFEN [Concomitant]
     Active Substance: BACLOFEN
  9. ASPIRIN [Concomitant]
     Active Substance: ASPIRIN
  10. FLOMAX [Concomitant]
     Active Substance: TAMSULOSIN HYDROCHLORIDE
  11. HYDRALAZINE [Concomitant]
     Active Substance: HYDRALAZINE HYDROCHLORIDE
  12. METOPROLOL [Concomitant]
     Active Substance: METOPROLOL
  13. POTASSIUM [Concomitant]
     Active Substance: POTASSIUM
  14. EZETIMIBE [Concomitant]
     Active Substance: EZETIMIBE
  15. HYDROCHLOROTHIAZIDE [Concomitant]
     Active Substance: HYDROCHLOROTHIAZIDE
  16. ATORVASTATIN [Concomitant]
     Active Substance: ATORVASTATIN

REACTIONS (7)
  - Insomnia [Recovering/Resolving]
  - Headache [Recovering/Resolving]
  - Feeling jittery [Recovering/Resolving]
  - Hypertension [Not Recovered/Not Resolved]
  - Asthenia [Recovering/Resolving]
  - Palpitations [Recovering/Resolving]
  - Contraindicated product administered [Recovered/Resolved]

NARRATIVE: CASE EVENT DATE: 20241024
